FAERS Safety Report 4303328-9 (Version None)
Quarter: 2004Q1

REPORT INFORMATION
  Report Type: 
  Country: None (occurrence: None)
  Receive Date: 20040223
  Receipt Date: 20040213
  Transmission Date: 20041129
  Serious: Yes (Other)
  Sender: FDA-Public Use
  Company Number: EM2003-0311

PATIENT
  Age: 73 Year
  Sex: Male

DRUGS (3)
  1. PROLEUKIN [Suspect]
     Indication: MALIGNANT MELANOMA
     Dosage: SEE IMAGE
     Route: 058
  2. PROLEUKIN [Suspect]
     Indication: MALIGNANT MELANOMA
     Dosage: SEE IMAGE
     Route: 058
     Dates: start: 20020430
  3. HISTAMINE DIPHOSPHATE [Suspect]
     Indication: MALIGNANT MELANOMA
     Dosage: 1 MG, BID D1-5 WKS 1-4, SUBCUTAN.
     Route: 058
     Dates: start: 20020430

REACTIONS (4)
  - ANAEMIA [None]
  - CHRONIC MYELOID LEUKAEMIA [None]
  - HEPATIC HAEMATOMA [None]
  - THROMBOCYTHAEMIA [None]
